FAERS Safety Report 10017171 (Version 4)
Quarter: 2018Q4

REPORT INFORMATION
  Report Type: Report from Study
  Country: GB (occurrence: GB)
  Receive Date: 20140318
  Receipt Date: 20181122
  Transmission Date: 20190204
  Serious: Yes (Death)
  Sender: FDA-Public Use
  Company Number: GB-AMGEN-GBRCT2014018821

PATIENT
  Age: 69 Year
  Sex: Male

DRUGS (1)
  1. ETANERCEPT [Suspect]
     Active Substance: ETANERCEPT
     Indication: RHEUMATOID ARTHRITIS
     Dosage: 25 MG, UNK
     Route: 065
     Dates: start: 20030804, end: 20031015

REACTIONS (1)
  - Adenocarcinoma of colon [Fatal]

NARRATIVE: CASE EVENT DATE: 20140124
